FAERS Safety Report 19389495 (Version 1)
Quarter: 2021Q2

REPORT INFORMATION
  Report Type: Spontaneous
  Country: GB (occurrence: GB)
  Receive Date: 20210608
  Receipt Date: 20210608
  Transmission Date: 20210717
  Serious: Yes (Other)
  Sender: FDA-Public Use
  Company Number: GB-BAYER-2021-152455

PATIENT
  Age: 33 Year
  Sex: Male
  Weight: 107 kg

DRUGS (1)
  1. CIPROXIN 500 MG [Suspect]
     Active Substance: CIPROFLOXACIN
     Indication: ILL-DEFINED DISORDER
     Dosage: 500 MG
     Route: 048
     Dates: start: 20210526, end: 20210526

REACTIONS (12)
  - Arthralgia [Not Recovered/Not Resolved]
  - Chest pain [Recovered/Resolved with Sequelae]
  - Muscle spasms [Not Recovered/Not Resolved]
  - Joint swelling [Not Recovered/Not Resolved]
  - Tendon pain [Not Recovered/Not Resolved]
  - Plantar fasciitis [Not Recovered/Not Resolved]
  - Abdominal pain [Recovered/Resolved with Sequelae]
  - Hypoaesthesia [Unknown]
  - Paraesthesia [Recovering/Resolving]
  - Back pain [Not Recovered/Not Resolved]
  - Insomnia [Not Recovered/Not Resolved]
  - Muscle fatigue [Not Recovered/Not Resolved]

NARRATIVE: CASE EVENT DATE: 20210526
